FAERS Safety Report 20578136 (Version 2)
Quarter: 2023Q1

REPORT INFORMATION
  Report Type: Spontaneous
  Country: US (occurrence: US)
  Receive Date: 20220310
  Receipt Date: 20230217
  Transmission Date: 20230418
  Serious: Yes (Other)
  Sender: FDA-Public Use
  Company Number: US-PFIZER INC-202200344261

PATIENT
  Age: 75 Year
  Sex: Male

DRUGS (3)
  1. XELJANZ [Suspect]
     Active Substance: TOFACITINIB CITRATE
     Indication: Rheumatoid arthritis
     Dosage: UNK
     Dates: start: 201308, end: 201408
  2. XELJANZ [Suspect]
     Active Substance: TOFACITINIB CITRATE
     Dosage: UNK
     Dates: end: 201906
  3. XELJANZ [Suspect]
     Active Substance: TOFACITINIB CITRATE
     Dosage: UNK
     Dates: start: 202001, end: 202003

REACTIONS (18)
  - Atrial fibrillation [Unknown]
  - Squamous cell carcinoma [Unknown]
  - Hepatitis [Unknown]
  - Post procedural haemorrhage [Unknown]
  - Dyspnoea at rest [Unknown]
  - Abdominal pain [Unknown]
  - Influenza [Unknown]
  - Drug ineffective [Unknown]
  - Psoriasis [Unknown]
  - Cholelithiasis [Unknown]
  - Tendon rupture [Unknown]
  - Arthralgia [Unknown]
  - Fall [Unknown]
  - Back pain [Unknown]
  - Dizziness [Unknown]
  - Memory impairment [Unknown]
  - Musculoskeletal stiffness [Unknown]
  - Spinal stenosis [Unknown]

NARRATIVE: CASE EVENT DATE: 20130101
